FAERS Safety Report 7888957-8 (Version None)
Quarter: 2011Q4

REPORT INFORMATION
  Report Type: 
  Country: None (occurrence: None)
  Receive Date: 20111103
  Receipt Date: 20111027
  Transmission Date: 20120403
  Serious: Yes (Hospitalization)
  Sender: FDA-Public Use
  Company Number: PHHY2011US60896

PATIENT
  Sex: Female

DRUGS (3)
  1. GILENYA [Suspect]
     Dosage: 0.5 MG, QD
     Route: 048
     Dates: start: 20110417
  2. STEROIDS NOS [Suspect]
  3. GILENYA [Suspect]
     Indication: MULTIPLE SCLEROSIS

REACTIONS (4)
  - MACULAR OEDEMA [None]
  - UVEITIS [None]
  - VISUAL ACUITY REDUCED [None]
  - OPHTHALMOLOGICAL EXAMINATION ABNORMAL [None]
